FAERS Safety Report 23330602 (Version 1)
Quarter: 2023Q4

REPORT INFORMATION
  Report Type: Spontaneous
  Country: SA (occurrence: SA)
  Receive Date: 20231222
  Receipt Date: 20231222
  Transmission Date: 20240110
  Serious: Yes (Other)
  Sender: FDA-Public Use
  Company Number: SA-Accord-397517

PATIENT
  Age: 51 Year
  Sex: Female

DRUGS (3)
  1. CISPLATIN [Suspect]
     Active Substance: CISPLATIN
     Indication: Peritoneal mesothelioma malignant
     Dosage: FIRST CYCLE
  2. CARBOPLATIN [Suspect]
     Active Substance: CARBOPLATIN
     Indication: Peritoneal mesothelioma malignant
  3. PEMETREXED [Concomitant]
     Active Substance: PEMETREXED
     Indication: Peritoneal mesothelioma malignant
     Dosage: FIRST CYCLE

REACTIONS (7)
  - Nausea [Unknown]
  - Febrile neutropenia [Unknown]
  - Thrombocytopenia [Unknown]
  - Bacteraemia [Unknown]
  - Acute kidney injury [Recovered/Resolved]
  - Mucosal inflammation [Unknown]
  - Off label use [Unknown]
